FAERS Safety Report 4873397-6 (Version None)
Quarter: 2005Q4

REPORT INFORMATION
  Report Type: 
  Country: None (occurrence: None)
  Receive Date: 20051201
  Receipt Date: 20050708
  Transmission Date: 20060501
  Serious: No
  Sender: FDA-Public Use
  Company Number: 2005PV000304

PATIENT
  Age: 68 Year
  Sex: Female
  Weight: 81.6475 kg

DRUGS (13)
  1. BYETTA [Suspect]
     Indication: DIABETES MELLITUS INSULIN-DEPENDENT
     Dosage: 10 MCG; BID;SC   : 5 MCG;BID;SC
     Route: 058
     Dates: start: 20050630, end: 20050801
  2. BYETTA [Suspect]
     Indication: DIABETES MELLITUS INSULIN-DEPENDENT
     Dosage: 10 MCG; BID;SC   : 5 MCG;BID;SC
     Route: 058
     Dates: start: 20050801
  3. HUMULIN 75/25 [Concomitant]
  4. INSULIN [Concomitant]
  5. WELLBUTRIN [Concomitant]
  6. GLUCOSAMINE [Concomitant]
  7. HYDROCHLORIDE/CHONDROITIN SULFATE [Concomitant]
  8. FUROSEMIDE [Concomitant]
  9. KLOR-CON [Concomitant]
  10. CLARITIN-D [Concomitant]
  11. TYLENOL (CAPLET) [Concomitant]
  12. ALEVE [Concomitant]
  13. MEDROL [Concomitant]

REACTIONS (10)
  - ABDOMINAL PAIN UPPER [None]
  - DECREASED APPETITE [None]
  - DERMATITIS EXFOLIATIVE [None]
  - HICCUPS [None]
  - HOT FLUSH [None]
  - HYPERHIDROSIS [None]
  - HYPOGLYCAEMIA [None]
  - NAUSEA [None]
  - VOMITING [None]
  - WEIGHT DECREASED [None]
